FAERS Safety Report 6526911-9 (Version None)
Quarter: 2010Q1

REPORT INFORMATION
  Report Type: 
  Country: None (occurrence: None)
  Receive Date: 20100104
  Receipt Date: 20100104
  Transmission Date: 20100710
  Serious: Yes (Other)
  Sender: FDA-Public Use
  Company Number: None

PATIENT
  Age: 36 Year
  Sex: Female
  Weight: 74.8435 kg

DRUGS (2)
  1. GEODON [Suspect]
     Indication: MIGRAINE
     Dosage: 20MG/ML TWICE DAILY PRN IM
     Route: 030
     Dates: start: 20090701, end: 20090804
  2. GEODON [Suspect]
     Indication: MIGRAINE PROPHYLAXIS
     Dosage: 20MG TWICE DAILY PO
     Route: 048
     Dates: start: 20090701, end: 20090804

REACTIONS (1)
  - THROMBOSIS [None]
